FAERS Safety Report 9046675 (Version 1)
Quarter: 2013Q1

REPORT INFORMATION
  Report Type: Spontaneous
  Country: US (occurrence: None)
  Receive Date: 20130128
  Receipt Date: 20130128
  Transmission Date: 20140127
  Serious: No
  Sender: FDA-Public Use
  Company Number: None

PATIENT
  Age: 54 Year
  Sex: Male
  Weight: 97.3 kg

DRUGS (2)
  1. PEGASYS [Suspect]
     Indication: CHRONIC HEPATITIS C
     Route: 058
  2. RIBASPHERE [Suspect]
     Route: 048

REACTIONS (8)
  - Blister [None]
  - Skin warm [None]
  - Ocular hyperaemia [None]
  - Eye ulcer [None]
  - Dyspnoea [None]
  - Chest pain [None]
  - Nausea [None]
  - Vomiting [None]
